FAERS Safety Report 4470432-4 (Version None)
Quarter: 2004Q3

REPORT INFORMATION
  Report Type: 
  Country: None (occurrence: None)
  Receive Date: 20040909
  Receipt Date: 20040712
  Transmission Date: 20050211
  Serious: Yes (Other)
  Sender: FDA-Public Use
  Company Number: A03200402261

PATIENT
  Age: 71 Year
  Sex: Male
  Weight: 76.2043 kg

DRUGS (5)
  1. ELOXATIN  - OXALIPLATION - SOLUTION [Suspect]
     Indication: COLORECTAL CANCER METASTATIC
     Dosage: 160 MG Q2W - INTRAVENOUS NOS
     Route: 042
     Dates: start: 20040621, end: 20040621
  2. FLUOROURACIL [Concomitant]
  3. LEUCOVORIN CALCIUM [Concomitant]
  4. DEXAMETHASONE [Concomitant]
  5. GRANISETRON [Concomitant]

REACTIONS (4)
  - ANAPHYLACTIC REACTION [None]
  - DISORIENTATION [None]
  - FLUSHING [None]
  - TACHYCARDIA [None]
